FAERS Safety Report 8203843-1 (Version None)
Quarter: 2012Q1

REPORT INFORMATION
  Report Type: 
  Country: None (occurrence: None)
  Receive Date: 20120308
  Receipt Date: 20120228
  Transmission Date: 20120608
  Serious: Yes (Hospitalization)
  Sender: FDA-Public Use
  Company Number: 2012SP011243

PATIENT
  Age: 92 Year
  Sex: Female

DRUGS (7)
  1. ACETAMINOPHEN [Concomitant]
  2. CORDARONE [Concomitant]
  3. CALCIUM CARBONATE [Concomitant]
  4. ESIDRIX [Concomitant]
  5. MIRTAZAPINE [Suspect]
     Indication: PRODUCT USED FOR UNKNOWN INDICATION
     Dosage: 15 MG, QD, PO
     Route: 048
     Dates: end: 20111112
  6. ASPIRIN [Concomitant]
  7. POLYETHYLENE GLYCOL [Concomitant]

REACTIONS (7)
  - ORTHOSTATIC HYPOTENSION [None]
  - FALL [None]
  - DEHYDRATION [None]
  - DISORIENTATION [None]
  - HYPERTENSION [None]
  - VISUAL IMPAIRMENT [None]
  - GAIT DISTURBANCE [None]
